FAERS Safety Report 9646402 (Version 5)
Quarter: 2014Q1

REPORT INFORMATION
  Report Type: Report from Study
  Country: CA (occurrence: CA)
  Receive Date: 20131025
  Receipt Date: 20140203
  Transmission Date: 20141002
  Serious: Yes (Hospitalization, Other)
  Sender: FDA-Public Use
  Company Number: CA-ABBVIE-13P-028-1154571-00

PATIENT
  Age: 51 Year
  Sex: Female
  Weight: 59.02 kg

DRUGS (14)
  1. HUMIRA [Suspect]
     Indication: CROHN^S DISEASE
     Route: 058
     Dates: start: 20080125
  2. HUMIRA [Suspect]
     Route: 058
     Dates: start: 2010
  3. HUMIRA [Suspect]
     Dosage: 160MG LOADING DOSE
     Dates: start: 20131004, end: 20131004
  4. HUMIRA [Suspect]
     Dosage: 80MG (2ND LOADING DOSE)
     Dates: start: 20131011, end: 20131011
  5. HUMIRA [Suspect]
     Dates: start: 201310
  6. HUMIRA [Suspect]
     Route: 058
     Dates: start: 20131018
  7. HUMIRA [Suspect]
     Route: 058
     Dates: start: 2013, end: 201401
  8. HUMIRA [Suspect]
     Route: 058
     Dates: start: 201401
  9. HUMIRA [Suspect]
     Dosage: LOADING DOSE
     Route: 058
     Dates: start: 20131004
  10. HUMIRA [Suspect]
     Dosage: SECOND LOADING DOSE
     Route: 058
     Dates: start: 20131011
  11. HUMIRA [Suspect]
     Route: 058
     Dates: start: 201310
  12. HUMIRA [Suspect]
     Dates: start: 20131024
  13. SERAX [Concomitant]
     Indication: SLEEP DISORDER THERAPY
     Route: 048
  14. ELAVIL [Concomitant]
     Indication: SLEEP DISORDER THERAPY
     Route: 048

REACTIONS (5)
  - Dysphagia [Unknown]
  - Crohn^s disease [Not Recovered/Not Resolved]
  - Device related infection [Recovered/Resolved]
  - Abdominal pain [Not Recovered/Not Resolved]
  - Drug ineffective [Unknown]
